FAERS Safety Report 23836802 (Version 1)
Quarter: 2024Q2

REPORT INFORMATION
  Report Type: Spontaneous
  Country: CN (occurrence: CN)
  Receive Date: 20240509
  Receipt Date: 20240509
  Transmission Date: 20240716
  Serious: Yes (Hospitalization)
  Sender: FDA-Public Use
  Company Number: CN-PFIZER INC-PV202400059648

PATIENT
  Age: 10 Year
  Sex: Male
  Weight: 30 kg

DRUGS (2)
  1. CYTARABINE [Suspect]
     Active Substance: CYTARABINE
     Indication: Chemotherapy
     Dosage: 3.355 G, 1X/DAY
     Route: 041
     Dates: start: 20240309, end: 20240313
  2. DEXTROSE [Concomitant]
     Active Substance: DEXTROSE\DEXTROSE MONOHYDRATE
     Indication: Vehicle solution use
     Dosage: 500 ML, 1X/DAY
     Route: 041
     Dates: start: 20240309, end: 20240313

REACTIONS (4)
  - Flushing [Recovering/Resolving]
  - Rash erythematous [Recovering/Resolving]
  - Herpes virus infection [Recovering/Resolving]
  - Impetigo [Recovering/Resolving]

NARRATIVE: CASE EVENT DATE: 20240315
